FAERS Safety Report 8934583 (Version 1)
Quarter: 2012Q4

REPORT INFORMATION
  Report Type: 
  Country: US (occurrence: US)
  Receive Date: 20121129
  Receipt Date: 20121129
  Transmission Date: 20130627
  Serious: Yes (Other)
  Sender: FDA-Public Use
  Company Number: US-PFIZER INC-2012296874

PATIENT
  Sex: Female
  Weight: 62.13 kg

DRUGS (3)
  1. ANTIVERT [Suspect]
     Indication: EQUILIBRIUM TROUBLE
     Dosage: 25 mg, 3x/day
     Route: 048
  2. ANTIVERT [Suspect]
     Indication: NAUSEA
  3. VALIUM [Concomitant]
     Dosage: UNK

REACTIONS (2)
  - Ulcer [Unknown]
  - Stress [Unknown]
